FAERS Safety Report 5254576-5 (Version None)
Quarter: 2007Q1

REPORT INFORMATION
  Report Type: 
  Country: None (occurrence: None)
  Receive Date: 20070302
  Receipt Date: 20070221
  Transmission Date: 20070707
  Serious: Yes (Hospitalization)
  Sender: FDA-Public Use
  Company Number: JP-MERCK-0702USA04251

PATIENT
  Age: 70 Year
  Sex: Female

DRUGS (2)
  1. TIMOPTIC [Suspect]
     Indication: GLAUCOMA
     Route: 047
     Dates: start: 20010501
  2. XALATAN [Concomitant]
     Indication: GLAUCOMA
     Route: 047
     Dates: start: 20010601

REACTIONS (3)
  - CONJUNCTIVAL DISORDER [None]
  - HYPOPYON [None]
  - ULCERATIVE KERATITIS [None]
